FAERS Safety Report 16936437 (Version 2)
Quarter: 2020Q4

REPORT INFORMATION
  Report Type: Report from Study
  Country: CA (occurrence: CA)
  Receive Date: 20191018
  Receipt Date: 20201014
  Transmission Date: 20210113
  Serious: Yes (Other)
  Sender: FDA-Public Use
  Company Number: CA-JNJFOC-20191014762

PATIENT
  Age: 53 Year
  Sex: Male
  Weight: 79.2 kg

DRUGS (2)
  1. REMICADE [Suspect]
     Active Substance: INFLIXIMAB
     Route: 042
  2. REMICADE [Suspect]
     Active Substance: INFLIXIMAB
     Indication: CROHN^S DISEASE
     Dosage: 10 MG/KG
     Route: 042

REACTIONS (1)
  - Skin cancer [Recovering/Resolving]
